FAERS Safety Report 7172084-1 (Version None)
Quarter: 2010Q4

REPORT INFORMATION
  Report Type: 
  Country: None (occurrence: None)
  Receive Date: 20101217
  Receipt Date: 20100208
  Transmission Date: 20110411
  Serious: No
  Sender: FDA-Public Use
  Company Number: US-AMGEN-KDL391448

PATIENT

DRUGS (5)
  1. ENBREL [Suspect]
     Indication: PSORIASIS
     Dosage: 50 MG, 2 TIMES/WK
  2. KETOCONAZOLE [Concomitant]
     Dosage: UNK UNK, UNK
  3. GLUCOSAMINE [Concomitant]
     Dosage: UNK UNK, UNK
  4. CALCITRIOL [Concomitant]
     Dosage: UNK UNK, UNK
  5. CLOBETASOL PROPIONATE [Concomitant]
     Dosage: UNK UNK, UNK

REACTIONS (1)
  - OEDEMA PERIPHERAL [None]
